FAERS Safety Report 10170560 (Version 1)
Quarter: 2014Q2

REPORT INFORMATION
  Report Type: Spontaneous
  Country: US (occurrence: US)
  Receive Date: 20140513
  Receipt Date: 20140513
  Transmission Date: 20141212
  Serious: Yes (Other)
  Sender: FDA-Public Use
  Company Number: PHHY2014US057346

PATIENT
  Age: 51 Year
  Sex: Male

DRUGS (6)
  1. HYDROCHLOROTHIAZIDE [Suspect]
  2. AMLODIPINE [Suspect]
     Indication: HYPERTENSION
     Dosage: 5 MG, UNK
  3. METOPROLOL [Suspect]
     Indication: HYPERTENSION
  4. HYDRALAZINE [Suspect]
     Indication: HYPERTENSION
  5. SPIRONOLACTONE [Suspect]
     Indication: HYPERTENSION
  6. CLONIDINE HYDROCHLORIDE [Suspect]
     Indication: HYPERTENSION

REACTIONS (4)
  - Renin increased [Unknown]
  - Hypokalaemia [Unknown]
  - Orthostatic hypotension [Unknown]
  - Drug ineffective [Unknown]
